FAERS Safety Report 18397584 (Version 1)
Quarter: 2020Q4

REPORT INFORMATION
  Report Type: Spontaneous
  Country: US (occurrence: US)
  Receive Date: 20201018
  Receipt Date: 20201018
  Transmission Date: 20210114
  Serious: Yes (Other)
  Sender: FDA-Public Use
  Company Number: None

PATIENT
  Age: 46 Year
  Sex: Male
  Weight: 80.55 kg

DRUGS (1)
  1. TOPRICIN FIBRO CREAM [Suspect]
     Active Substance: HOMEOPATHICS
     Indication: FIBROMYALGIA
     Dosage: ?          OTHER STRENGTH:6X;QUANTITY:1 OUNCE(S);?
     Route: 061
     Dates: start: 20201002, end: 20201003

REACTIONS (2)
  - Drug ineffective [None]
  - Rash [None]

NARRATIVE: CASE EVENT DATE: 20201003
